FAERS Safety Report 5961689-9 (Version None)
Quarter: 2008Q4

REPORT INFORMATION
  Report Type: 
  Country: None (occurrence: None)
  Receive Date: 20081114
  Receipt Date: 20081009
  Transmission Date: 20090506
  Serious: No
  Sender: FDA-Public Use
  Company Number: WAES 0810USA01998

PATIENT
  Sex: 0

DRUGS (1)
  1. ISENTRESS [Suspect]
     Indication: HIV INFECTION
     Dosage: 400 MG/ BID/ PO
     Route: 048

REACTIONS (2)
  - HEPATIC ENZYME INCREASED [None]
  - HEPATITIS ACUTE [None]
